FAERS Safety Report 8672407 (Version 2)
Quarter: 2013Q1

REPORT INFORMATION
  Report Type: Spontaneous
  Country: US (occurrence: US)
  Receive Date: 20120719
  Receipt Date: 20130116
  Transmission Date: 20140127
  Serious: No
  Sender: FDA-Public Use
  Company Number: US-B.I. PHARMACEUTICALS,INC./RIDGEFIELD-2012-BP-15145BP

PATIENT
  Age: 79 None
  Sex: Female

DRUGS (5)
  1. SPIRIVA [Suspect]
     Indication: BRONCHITIS CHRONIC
     Dosage: 18 MCG
     Route: 055
     Dates: start: 201109
  2. ATIVAN [Concomitant]
     Indication: ANXIETY
     Dosage: 0.25 MG
     Route: 048
  3. ECOTRIN [Concomitant]
     Indication: PROPHYLAXIS
     Dosage: 81 MG
     Route: 048
  4. METOPROLOL [Concomitant]
     Indication: HYPERTENSION
     Dosage: 75 MG
     Route: 048
  5. PROAIR [Concomitant]
     Indication: BRONCHITIS
     Dosage: 2 PUF
     Route: 055
     Dates: start: 200903

REACTIONS (7)
  - Dyspnoea [Recovered/Resolved]
  - Chromaturia [Recovered/Resolved]
  - Dyspnoea [Not Recovered/Not Resolved]
  - Chromaturia [Not Recovered/Not Resolved]
  - Chromaturia [Recovered/Resolved]
  - Product quality issue [Recovered/Resolved]
  - Product quality issue [Recovered/Resolved]
